FAERS Safety Report 5176956-9 (Version None)
Quarter: 2006Q4

REPORT INFORMATION
  Report Type: 
  Country: None (occurrence: None)
  Receive Date: 20061212
  Receipt Date: 20061212
  Transmission Date: 20070319
  Serious: No
  Sender: FDA-Public Use
  Company Number: None

PATIENT
  Age: 56 Year
  Sex: Female
  Weight: 97.5234 kg

DRUGS (2)
  1. LEUKINE [Suspect]
     Indication: ANAEMIA
     Dosage: 500MCG 9 DAY SQ
     Route: 058
     Dates: start: 20060927
  2. LEUKINE [Suspect]
     Indication: CHRONIC LYMPHOCYTIC LEUKAEMIA
     Dosage: 500MCG 9 DAY SQ
     Route: 058
     Dates: start: 20060927

REACTIONS (5)
  - DIZZINESS [None]
  - DYSPNOEA [None]
  - FALL [None]
  - HYPERHIDROSIS [None]
  - PRESYNCOPE [None]
